FAERS Safety Report 4386642-0 (Version None)
Quarter: 2004Q2

REPORT INFORMATION
  Report Type: 
  Country: None (occurrence: None)
  Receive Date: 20040623
  Receipt Date: 20040603
  Transmission Date: 20050107
  Serious: Yes (Hospitalization, Other)
  Sender: FDA-Public Use
  Company Number: US_010259556

PATIENT
  Age: 62 Year
  Sex: Female
  Weight: 61 kg

DRUGS (4)
  1. HUMALOG [Suspect]
     Indication: DIABETES MELLITUS
     Dosage: 35 U/1 IN THE MORNING
     Dates: start: 20010206
  2. HUMALOG [Suspect]
     Indication: DIABETES MELLITUS
     Dosage: 35 U/1 IN THE MORNING
     Dates: start: 20010124
  3. GLUCOPHAGE [Concomitant]
  4. AVANDIA [Concomitant]

REACTIONS (9)
  - ARTERIAL REPAIR [None]
  - BLINDNESS [None]
  - BLOOD GLUCOSE INCREASED [None]
  - CATARACT OPERATION [None]
  - EYE HAEMORRHAGE [None]
  - GLAUCOMA [None]
  - MEDICATION ERROR [None]
  - PHARMACEUTICAL PRODUCT COMPLAINT [None]
  - RETINOPATHY [None]
